FAERS Safety Report 8306917-X (Version None)
Quarter: 2012Q2

REPORT INFORMATION
  Report Type: 
  Country: None (occurrence: None)
  Receive Date: 20120424
  Receipt Date: 20120412
  Transmission Date: 20120825
  Serious: Yes (Other)
  Sender: FDA-Public Use
  Company Number: US-JNJFOC-20120406367

PATIENT
  Age: 26 Year
  Sex: Female
  Weight: 54.43 kg

DRUGS (6)
  1. CYCLOBENZAPRINE [Concomitant]
     Route: 065
  2. HYDROCODONE BITARTRATE [Concomitant]
     Dosage: 10MG/ 650 MG
     Route: 065
  3. REMICADE [Suspect]
     Indication: RHEUMATOID ARTHRITIS
     Dosage: 3 MG/KG FOR THE FIRST FOUR INFUSION
     Route: 042
  4. XANAX [Concomitant]
     Route: 065
  5. INDOMETHACIN [Concomitant]
     Route: 065
  6. REMICADE [Suspect]
     Dosage: 5MG/KG 5TH INFUSION
     Route: 042
     Dates: start: 20120212

REACTIONS (2)
  - LOSS OF CONSCIOUSNESS [None]
  - CONVULSION [None]
